FAERS Safety Report 7413320-3 (Version None)
Quarter: 2011Q2

REPORT INFORMATION
  Report Type: 
  Country: None (occurrence: None)
  Receive Date: 20110413
  Receipt Date: 20101209
  Transmission Date: 20111010
  Serious: No
  Sender: FDA-Public Use
  Company Number: US-ASTRAZENECA-2010SE58755

PATIENT
  Age: 71 Year
  Sex: Female

DRUGS (1)
  1. ATENOLOL [Suspect]
     Route: 065

REACTIONS (2)
  - DIZZINESS [None]
  - PALPITATIONS [None]
